FAERS Safety Report 10554389 (Version 2)
Quarter: 2015Q2

REPORT INFORMATION
  Report Type: Spontaneous
  Country: US (occurrence: US)
  Receive Date: 20141030
  Receipt Date: 20150511
  Transmission Date: 20150821
  Serious: No
  Sender: FDA-Public Use
  Company Number: US-PFIZER INC-2014298274

PATIENT
  Sex: Female

DRUGS (1)
  1. ^DRUG, UNSPUCIFIED^ [Suspect]
     Active Substance: UNSPECIFIED INGREDIENT
     Dosage: UNK UNK, 1X/DAY
     Dates: start: 2006

REACTIONS (1)
  - Drug hypersensitivity [Recovered/Resolved]
